FAERS Safety Report 5929256-0 (Version None)
Quarter: 2008Q4

REPORT INFORMATION
  Report Type: 
  Country: None (occurrence: None)
  Receive Date: 20081023
  Receipt Date: 20081023
  Transmission Date: 20090506
  Serious: Yes (Hospitalization)
  Sender: FDA-Public Use
  Company Number: None

PATIENT
  Age: 56 Year
  Sex: Male
  Weight: 73.4827 kg

DRUGS (1)
  1. CLINDAMYCIN HCL [Suspect]
     Indication: POST PROCEDURAL INFECTION
     Dosage: DAILY

REACTIONS (2)
  - ANAL FISSURE [None]
  - DIARRHOEA [None]
